FAERS Safety Report 18370706 (Version 1)
Quarter: 2020Q4

REPORT INFORMATION
  Report Type: Spontaneous
  Country: CN (occurrence: CN)
  Receive Date: 20201012
  Receipt Date: 20201012
  Transmission Date: 20210114
  Serious: Yes (Hospitalization, Other)
  Sender: FDA-Public Use
  Company Number: CN-NEXUS PHARMA-000017

PATIENT
  Age: 55 Year
  Sex: Female

DRUGS (3)
  1. TRETINOIN. [Suspect]
     Active Substance: TRETINOIN
     Indication: ACUTE PROMYELOCYTIC LEUKAEMIA
     Dosage: ATRA (45 MG/M2)
  2. IDAMYCIN [Concomitant]
     Active Substance: IDARUBICIN HYDROCHLORIDE
     Indication: ACUTE PROMYELOCYTIC LEUKAEMIA
     Dosage: 8 MG/M2 FOR DAYS 1-3
  3. ARSENIC [Suspect]
     Active Substance: ARSENIC
     Indication: ACUTE PROMYELOCYTIC LEUKAEMIA

REACTIONS (2)
  - Pancreatitis acute [Recovered/Resolved]
  - Wernicke^s encephalopathy [Recovered/Resolved]
